FAERS Safety Report 14149676 (Version 1)
Quarter: 2017Q4

REPORT INFORMATION
  Report Type: Spontaneous
  Country: NL (occurrence: NL)
  Receive Date: 20171101
  Receipt Date: 20171101
  Transmission Date: 20180321
  Serious: Yes (Other)
  Sender: FDA-Public Use
  Company Number: NL-TOLMAR, INC.-2017NL013475

PATIENT
  Age: 59 Year
  Sex: Male

DRUGS (1)
  1. ELIGARD [Suspect]
     Active Substance: LEUPROLIDE ACETATE
     Indication: PROSTATE CANCER METASTATIC
     Dosage: UNK,UNKNOWN FREQ. (6 MONTHS)
     Route: 065
     Dates: start: 201707

REACTIONS (1)
  - Blood testosterone abnormal [Recovering/Resolving]

NARRATIVE: CASE EVENT DATE: 20170928
